FAERS Safety Report 15296047 (Version 2)
Quarter: 2018Q3

REPORT INFORMATION
  Report Type: Spontaneous
  Country: US (occurrence: US)
  Receive Date: 20180820
  Receipt Date: 20180823
  Transmission Date: 20181010
  Serious: No
  Sender: FDA-Public Use
  Company Number: US-PFIZER INC-2018330665

PATIENT
  Age: 77 Year
  Sex: Female

DRUGS (1)
  1. DEPO?MEDROL [Suspect]
     Active Substance: METHYLPREDNISOLONE ACETATE
     Indication: PNEUMONIA
     Dosage: 125 MG, SINGLE
     Route: 030

REACTIONS (8)
  - Dysphagia [Unknown]
  - Weight decreased [Unknown]
  - Weight increased [Unknown]
  - Vertigo [Not Recovered/Not Resolved]
  - Barotrauma [Unknown]
  - Speech disorder [Unknown]
  - Gait disturbance [Unknown]
  - Burning sensation [Unknown]
